FAERS Safety Report 13680921 (Version 1)
Quarter: 2017Q2

REPORT INFORMATION
  Report Type: Spontaneous
  Country: GB (occurrence: GB)
  Receive Date: 20170623
  Receipt Date: 20170623
  Transmission Date: 20170830
  Serious: Yes (Other)
  Sender: FDA-Public Use
  Company Number: GB-ASTRAZENECA-2017SE64545

PATIENT
  Age: 15 Year
  Sex: Female

DRUGS (1)
  1. ZOLMITRIPTAN. [Suspect]
     Active Substance: ZOLMITRIPTAN
     Indication: MIGRAINE WITH AURA
     Dosage: 2.5MG UNKNOWN
     Route: 048
     Dates: start: 201606

REACTIONS (3)
  - Drug ineffective [Unknown]
  - Disorientation [Recovered/Resolved]
  - Confusional state [Unknown]
